FAERS Safety Report 13642437 (Version 1)
Quarter: 2017Q2

REPORT INFORMATION
  Report Type: Spontaneous
  Country: US (occurrence: US)
  Receive Date: 20170612
  Receipt Date: 20170612
  Transmission Date: 20170830
  Serious: Yes (Hospitalization)
  Sender: FDA-Public Use
  Company Number: US-IGSA-SR10004914

PATIENT
  Age: 66 Year
  Sex: Male
  Weight: 124 kg

DRUGS (17)
  1. MELOXICAM. [Concomitant]
     Active Substance: MELOXICAM
  2. VICODIN [Concomitant]
     Active Substance: ACETAMINOPHEN\HYDROCODONE BITARTRATE
  3. SIMVASTATIN. [Concomitant]
     Active Substance: SIMVASTATIN
  4. TAMULOSIN [Concomitant]
     Active Substance: TAMSULOSIN
  5. CALCIUM [Concomitant]
     Active Substance: CALCIUM
  6. CYCLOBENZAPRINE. [Concomitant]
     Active Substance: CYCLOBENZAPRINE
  7. SERTRALINE [Concomitant]
     Active Substance: SERTRALINE HYDROCHLORIDE
  8. PERCOCET                           /00446701/ [Concomitant]
     Active Substance: ACETAMINOPHEN\OXYCODONE HYDROCHLORIDE\OXYCODONE TEREPHTHALATE
  9. PROLASTIN-C [Suspect]
     Active Substance: .ALPHA.1-PROTEINASE INHIBITOR HUMAN
     Indication: ALPHA-1 ANTI-TRYPSIN DEFICIENCY
     Dosage: 7440 MG, Q.WK.
     Route: 042
     Dates: start: 20170531, end: 20170531
  10. OXYMORPHONE [Concomitant]
     Active Substance: OXYMORPHONE
  11. BUDESONIDE. [Concomitant]
     Active Substance: BUDESONIDE
  12. TRAMADOL. [Concomitant]
     Active Substance: TRAMADOL
  13. COMBIVENT [Concomitant]
     Active Substance: ALBUTEROL SULFATE\IPRATROPIUM BROMIDE
  14. IPRATROPIUM [Concomitant]
     Active Substance: IPRATROPIUM
  15. BREO ELLIPTA [Concomitant]
     Active Substance: FLUTICASONE FUROATE\VILANTEROL TRIFENATATE
  16. PROLASTIN-C [Suspect]
     Active Substance: .ALPHA.1-PROTEINASE INHIBITOR HUMAN
     Dosage: 7440 MG, Q.WK.
     Route: 042
     Dates: start: 20160525, end: 20170531
  17. VITAMIN D                          /00107901/ [Concomitant]
     Active Substance: ERGOCALCIFEROL

REACTIONS (3)
  - Abdominal pain upper [Not Recovered/Not Resolved]
  - Thrombosis [Not Recovered/Not Resolved]
  - Intestinal ischaemia [Not Recovered/Not Resolved]

NARRATIVE: CASE EVENT DATE: 20170531
